FAERS Safety Report 7687482-7 (Version None)
Quarter: 2011Q3

REPORT INFORMATION
  Report Type: 
  Country: None (occurrence: None)
  Receive Date: 20110817
  Receipt Date: 20110810
  Transmission Date: 20111222
  Serious: Yes (Hospitalization, Other)
  Sender: FDA-Public Use
  Company Number: FR-BRISTOL-MYERS SQUIBB COMPANY-15950074

PATIENT
  Age: 55 Year
  Sex: Female
  Weight: 42 kg

DRUGS (9)
  1. OMEPRAZOLE [Concomitant]
     Route: 048
     Dates: start: 20110722
  2. IPILIMUMAB [Suspect]
     Indication: MALIGNANT MELANOMA
     Route: 042
     Dates: start: 20110720, end: 20110720
  3. ACETAMINOPHEN [Concomitant]
     Indication: PAIN
     Dates: start: 20110722
  4. PREDNISOLONE [Concomitant]
     Route: 048
     Dates: start: 20110601, end: 20110801
  5. KEPPRA [Concomitant]
     Indication: NERVOUS SYSTEM DISORDER
     Dates: start: 20110719
  6. LEXOMIL [Concomitant]
     Indication: ANXIETY
     Dosage: QUARTER PER DAY
     Dates: start: 20110722
  7. PRIMPERAN TAB [Concomitant]
  8. SOLU-MEDROL [Concomitant]
     Route: 042
  9. ACUPAN [Concomitant]

REACTIONS (4)
  - LYMPHOPENIA [None]
  - VOMITING [None]
  - HEADACHE [None]
  - HYPERTHYROIDISM [None]
